FAERS Safety Report 16338836 (Version 1)
Quarter: 2019Q2

REPORT INFORMATION
  Report Type: Report from Study
  Country: RU (occurrence: RU)
  Receive Date: 20190521
  Receipt Date: 20190521
  Transmission Date: 20190711
  Serious: Yes (Other)
  Sender: FDA-Public Use
  Company Number: RU-ASTRAZENECA-2019SE74669

PATIENT
  Age: 69 Year
  Sex: Female
  Weight: 57.4 kg

DRUGS (7)
  1. TULIP [Concomitant]
  2. AMLODIPINE [Concomitant]
     Active Substance: AMLODIPINE BESYLATE
  3. HEPARIN [Concomitant]
     Active Substance: HEPARIN SODIUM
  4. BRILINTA [Suspect]
     Active Substance: TICAGRELOR
     Indication: MYOCARDIAL INFARCTION
     Route: 048
     Dates: start: 20181216
  5. CONCOR [Concomitant]
     Active Substance: BISOPROLOL FUMARATE
  6. THROMBO ASS [Concomitant]
     Active Substance: ASPIRIN
  7. LORISTA [Concomitant]
     Active Substance: LOSARTAN POTASSIUM

REACTIONS (10)
  - Ear disorder [Recovered/Resolved]
  - Headache [Recovered/Resolved]
  - Weight decreased [Recovered/Resolved]
  - Deafness [Not Recovered/Not Resolved]
  - Contusion [Recovering/Resolving]
  - Ear haemorrhage [Recovered/Resolved]
  - Platelet count increased [Recovering/Resolving]
  - Epistaxis [Recovered/Resolved]
  - Oral discomfort [Not Recovered/Not Resolved]
  - Bronchitis [Recovered/Resolved]

NARRATIVE: CASE EVENT DATE: 201812
